FAERS Safety Report 7509509-5 (Version None)
Quarter: 2011Q2

REPORT INFORMATION
  Report Type: 
  Country: None (occurrence: None)
  Receive Date: 20110527
  Receipt Date: 20110524
  Transmission Date: 20111010
  Serious: No
  Sender: FDA-Public Use
  Company Number: US-PFIZER INC-2011113188

PATIENT
  Sex: Female
  Weight: 56.689 kg

DRUGS (2)
  1. CHANTIX [Suspect]
     Indication: SMOKING CESSATION THERAPY
     Dosage: 0.5MG, DAILY
     Route: 048
     Dates: start: 20110519, end: 20110501
  2. CHANTIX [Suspect]
     Dosage: UNK
     Route: 048
     Dates: start: 20110501, end: 20110523

REACTIONS (2)
  - MUSCLE TWITCHING [None]
  - ANGER [None]
